FAERS Safety Report 25715237 (Version 1)
Quarter: 2025Q3

REPORT INFORMATION
  Report Type: Spontaneous
  Country: SG (occurrence: SG)
  Receive Date: 20250822
  Receipt Date: 20250822
  Transmission Date: 20251021
  Serious: Yes (Life-Threatening, Hospitalization)
  Sender: ACCORD
  Company Number: SG-MLMSERVICE-20250804-PI601343-00327-1

PATIENT
  Age: 18 Year
  Sex: Female

DRUGS (4)
  1. QUETIAPINE [Suspect]
     Active Substance: QUETIAPINE
  2. SERTRALINE [Suspect]
     Active Substance: SERTRALINE HYDROCHLORIDE
  3. ESTAZOLAM [Suspect]
     Active Substance: ESTAZOLAM
  4. VALPROATE SODIUM [Suspect]
     Active Substance: VALPROATE SODIUM

REACTIONS (3)
  - Hyperammonaemic encephalopathy [Recovering/Resolving]
  - Intentional overdose [Unknown]
  - Suicide attempt [Unknown]
